FAERS Safety Report 7743924-X (Version None)
Quarter: 2011Q3

REPORT INFORMATION
  Report Type: 
  Country: None (occurrence: None)
  Receive Date: 20110912
  Receipt Date: 20110906
  Transmission Date: 20111222
  Serious: Yes (Hospitalization)
  Sender: FDA-Public Use
  Company Number: JP-GLAXOSMITHKLINE-B0714652A

PATIENT
  Age: 30 Year
  Sex: Female

DRUGS (3)
  1. FOLIC ACID [Concomitant]
     Indication: EPILEPSY
     Dosage: 10MG PER DAY
     Route: 048
     Dates: start: 20110302, end: 20110412
  2. DEPAKENE [Concomitant]
     Indication: EPILEPSY
     Route: 048
     Dates: start: 19980101, end: 20110412
  3. LAMICTAL [Suspect]
     Indication: EPILEPSY
     Dosage: 25MG PER DAY
     Route: 048
     Dates: start: 20110302, end: 20110329

REACTIONS (1)
  - DRUG RASH WITH EOSINOPHILIA AND SYSTEMIC SYMPTOMS [None]
